FAERS Safety Report 6221645-2 (Version None)
Quarter: 2009Q2

REPORT INFORMATION
  Report Type: 
  Country: None (occurrence: None)
  Receive Date: 20090610
  Receipt Date: 20090605
  Transmission Date: 20091009
  Serious: Yes (Death)
  Sender: FDA-Public Use
  Company Number: US-ABBOTT-09P-163-0573089-00

PATIENT
  Sex: Male
  Weight: 104.42 kg

DRUGS (5)
  1. HUMIRA [Suspect]
     Indication: PSORIASIS
     Route: 058
     Dates: start: 20090306, end: 20090508
  2. LORTAB [Concomitant]
     Indication: PAIN
     Route: 048
     Dates: end: 20090508
  3. TAZORAC [Concomitant]
     Indication: DRUG USE FOR UNKNOWN INDICATION
  4. OLUX [Concomitant]
     Indication: DRUG USE FOR UNKNOWN INDICATION
  5. VYTONE [Concomitant]
     Indication: DRUG USE FOR UNKNOWN INDICATION
     Route: 061

REACTIONS (1)
  - MYOCARDIAL INFARCTION [None]
